FAERS Safety Report 4924649-2 (Version None)
Quarter: 2006Q1

REPORT INFORMATION
  Report Type: 
  Country: None (occurrence: None)
  Receive Date: 20060222
  Receipt Date: 20060209
  Transmission Date: 20060701
  Serious: No
  Sender: FDA-Public Use
  Company Number: 2005-135711-NL

PATIENT
  Sex: Female

DRUGS (4)
  1. MARVELON [Suspect]
     Dosage: DF
  2. TRIPHASIL-28 [Suspect]
  3. ALESSE [Suspect]
  4. LEVOTHYROXINE SODIUM [Concomitant]

REACTIONS (6)
  - BLOOD URINE PRESENT [None]
  - DRUG EXPOSURE BEFORE PREGNANCY [None]
  - DYSPEPSIA [None]
  - HEPATIC ADENOMA [None]
  - MENSTRUATION IRREGULAR [None]
  - PREGNANCY [None]
